FAERS Safety Report 10149189 (Version 1)
Quarter: 2014Q2

REPORT INFORMATION
  Report Type: Spontaneous
  Country: US (occurrence: None)
  Receive Date: 20140501
  Receipt Date: 20140501
  Transmission Date: 20141212
  Serious: Yes (Hospitalization)
  Sender: FDA-Public Use
  Company Number: None

PATIENT
  Age: 61 Year
  Sex: Female

DRUGS (10)
  1. OXYCODONE-ACETAMINOPHEN [Suspect]
     Indication: PAIN
     Dosage: TWO 5/325MG TABS
     Route: 048
     Dates: start: 20130611, end: 20130611
  2. ASPIRIN [Concomitant]
  3. HEPARIN [Concomitant]
  4. HYDRALAZINE [Concomitant]
  5. INSULIN ASPART [Concomitant]
  6. LANSOPRAZOLE [Concomitant]
  7. LORAZEPAM [Concomitant]
  8. MAGNESIUM SULFATE [Concomitant]
  9. METOPROLOL [Concomitant]
  10. PAROXETINE [Concomitant]

REACTIONS (5)
  - Dysarthria [None]
  - Lethargy [None]
  - Sedation [None]
  - Respiratory rate decreased [None]
  - Respiratory rate increased [None]
